FAERS Safety Report 16042589 (Version 2)
Quarter: 2019Q1

REPORT INFORMATION
  Report Type: Spontaneous
  Country: US (occurrence: US)
  Receive Date: 20190306
  Receipt Date: 20190321
  Transmission Date: 20190418
  Serious: Yes (Other)
  Sender: FDA-Public Use
  Company Number: US-AKORN PHARMACEUTICALS-2019AKN00370

PATIENT
  Age: 15 Year
  Sex: Male
  Weight: 75.4 kg

DRUGS (2)
  1. MYORISAN [Suspect]
     Active Substance: ISOTRETINOIN
     Indication: ACNE
     Dosage: 30 MG, 1X/DAY
     Dates: start: 20190109, end: 20190206
  2. ALBUTEROL. [Concomitant]
     Active Substance: ALBUTEROL
     Dosage: 90 ?G, UP TO 4X/DAY AS NEEDED

REACTIONS (3)
  - Depressed mood [Recovering/Resolving]
  - Off label use [Recovered/Resolved]
  - Crying [Recovering/Resolving]

NARRATIVE: CASE EVENT DATE: 20190109
